FAERS Safety Report 8140513-2 (Version None)
Quarter: 2012Q1

REPORT INFORMATION
  Report Type: 
  Country: None (occurrence: None)
  Receive Date: 20120214
  Receipt Date: 20120214
  Transmission Date: 20120608
  Serious: Yes (Life-Threatening, Hospitalization)
  Sender: FDA-Public Use
  Company Number: None

PATIENT
  Age: 80 Year
  Sex: Male
  Weight: 69.7 kg

DRUGS (1)
  1. IOPAMIDOL [Suspect]
     Indication: ANGIOGRAM
     Dosage: 100 ML ONCE IV
     Route: 042
     Dates: start: 20111221, end: 20111221

REACTIONS (2)
  - ANAPHYLACTIC REACTION [None]
  - ANGIOEDEMA [None]
